FAERS Safety Report 4965744-1 (Version None)
Quarter: 2006Q1

REPORT INFORMATION
  Report Type: 
  Country: None (occurrence: None)
  Receive Date: 20060331
  Receipt Date: 20060324
  Transmission Date: 20060701
  Serious: Yes (Hospitalization)
  Sender: FDA-Public Use
  Company Number: 2006BI002572

PATIENT
  Age: 43 Year
  Sex: Female

DRUGS (12)
  1. AVONEX [Suspect]
     Indication: MULTIPLE SCLEROSIS
     Dosage: 30 UG; QW; IM
     Route: 030
     Dates: start: 19960401, end: 20031001
  2. AVONEX [Suspect]
     Indication: MULTIPLE SCLEROSIS
     Dosage: 30 UG; QW; IM
     Route: 030
     Dates: start: 20031024, end: 20040601
  3. AVONEX [Suspect]
     Indication: MULTIPLE SCLEROSIS
     Dosage: 30 UG; Q5D; IM
     Route: 030
     Dates: start: 20040601
  4. EFFEXOR [Concomitant]
  5. XANAX [Concomitant]
  6. NEURONTIN [Concomitant]
  7. AVAPRO [Concomitant]
  8. ZETIA [Concomitant]
  9. PREVACID [Concomitant]
  10. SEROQUEL [Concomitant]
  11. DESYREL [Concomitant]
  12. AVAPRO [Concomitant]

REACTIONS (3)
  - ANKLE FRACTURE [None]
  - CONFUSIONAL STATE [None]
  - FALL [None]
